FAERS Safety Report 5729012-2 (Version None)
Quarter: 2008Q2

REPORT INFORMATION
  Report Type: 
  Country: None (occurrence: None)
  Receive Date: 20080505
  Receipt Date: 20080505
  Transmission Date: 20081010
  Serious: Yes (Other)
  Sender: FDA-Public Use
  Company Number: None

PATIENT
  Age: 67 Year
  Sex: Female
  Weight: 59.8748 kg

DRUGS (4)
  1. BONIVA [Suspect]
     Indication: OSTEOPENIA
     Dosage: 1 X MONTH P.O.
     Route: 048
     Dates: start: 20070201
  2. BONIVA [Suspect]
     Indication: OSTEOPENIA
     Dosage: 1 X MONTH P.O.
     Route: 048
     Dates: start: 20070301
  3. BONIVA [Suspect]
     Indication: OSTEOPENIA
     Dosage: 1 X MONTH P.O.
     Route: 048
     Dates: start: 20070401
  4. BONIVA [Suspect]
     Indication: OSTEOPENIA
     Dosage: 1 X MONTH P.O.
     Route: 048
     Dates: start: 20070501

REACTIONS (1)
  - VAGINAL HAEMORRHAGE [None]
